FAERS Safety Report 4540433-6 (Version None)
Quarter: 2004Q4

REPORT INFORMATION
  Report Type: 
  Country: None (occurrence: None)
  Receive Date: 20041228
  Receipt Date: 20041213
  Transmission Date: 20050328
  Serious: Yes (Death)
  Sender: FDA-Public Use
  Company Number: 2004S1003511

PATIENT
  Age: 95 Year
  Sex: Male
  Weight: 84.369 kg

DRUGS (5)
  1. CLOZAPINE [Suspect]
     Indication: DELUSION
     Dosage: 12.5MG HS, ORAL
     Route: 048
     Dates: start: 20030601
  2. CLOZAPINE [Suspect]
     Indication: HALLUCINATION
     Dosage: 12.5MG HS, ORAL
     Route: 048
     Dates: start: 20030601
  3. CLOZAPINE [Suspect]
     Indication: PARKINSON'S DISEASE
     Dosage: 12.5MG HS, ORAL
     Route: 048
     Dates: start: 20030601
  4. CARBIDOPA AND LEVODOPA [Concomitant]
  5. PREDNISONE [Concomitant]

REACTIONS (3)
  - CEREBROVASCULAR ACCIDENT [None]
  - PATHOGEN RESISTANCE [None]
  - PNEUMONIA [None]
